FAERS Safety Report 6127001-X (Version None)
Quarter: 2009Q1

REPORT INFORMATION
  Report Type: 
  Country: None (occurrence: None)
  Receive Date: 20090320
  Receipt Date: 20090311
  Transmission Date: 20090719
  Serious: Yes (Hospitalization, Disabling, Other)
  Sender: FDA-Public Use
  Company Number: US-MERCK-0805USA00734

PATIENT
  Age: 76 Year
  Sex: Female
  Weight: 71 kg

DRUGS (2)
  1. FOSAMAX [Suspect]
     Indication: OSTEOPOROSIS
     Route: 048
     Dates: start: 19970101, end: 20070901
  2. FOSAMAX [Suspect]
     Route: 048

REACTIONS (20)
  - ABSCESS [None]
  - ARTHRALGIA [None]
  - ARTHROPATHY [None]
  - BREAST MASS [None]
  - DENTAL CARIES [None]
  - HORMONE LEVEL ABNORMAL [None]
  - HYPERTENSION [None]
  - INTERVERTEBRAL DISC DEGENERATION [None]
  - JOINT DISLOCATION [None]
  - MASS [None]
  - NECK PAIN [None]
  - OSTEOARTHRITIS [None]
  - OSTEOMYELITIS [None]
  - OSTEONECROSIS [None]
  - RADICULITIS BRACHIAL [None]
  - RADICULITIS CERVICAL [None]
  - RHEUMATOID ARTHRITIS [None]
  - SPINAL DISORDER [None]
  - SPINAL OSTEOARTHRITIS [None]
  - TENOSYNOVITIS [None]
